FAERS Safety Report 5708989-5 (Version None)
Quarter: 2008Q2

REPORT INFORMATION
  Report Type: 
  Country: None (occurrence: None)
  Receive Date: 20080414
  Receipt Date: 20080414
  Transmission Date: 20081010
  Serious: Yes (Other)
  Sender: FDA-Public Use
  Company Number: None

PATIENT
  Age: 7 Year
  Sex: Male
  Weight: 22.6799 kg

DRUGS (1)
  1. TAMIFLU [Suspect]
     Indication: INFLUENZA
     Dosage: 45 MG 2X PO
     Route: 048
     Dates: start: 20080410, end: 20080410

REACTIONS (6)
  - CRYING [None]
  - PANIC ATTACK [None]
  - SCREAMING [None]
  - SLEEP DISORDER [None]
  - SLEEP TERROR [None]
  - SOMNAMBULISM [None]
